FAERS Safety Report 9062738 (Version 1)
Quarter: 2013Q1

REPORT INFORMATION
  Report Type: Spontaneous
  Country: US (occurrence: US)
  Receive Date: 20130128
  Receipt Date: 20130128
  Transmission Date: 20140127
  Serious: Yes (Hospitalization)
  Sender: FDA-Public Use
  Company Number: US-BAYER-2013-008185

PATIENT
  Age: 20 Year
  Sex: Female
  Weight: 95.24 kg

DRUGS (4)
  1. YAZ [Suspect]
     Indication: CONTRACEPTION
  2. PHENERGAN [Concomitant]
     Dosage: 25 MG, UNK
  3. OXYCONTIN [Concomitant]
     Dosage: 20 MG, UNK
  4. NORCO [Concomitant]
     Dosage: 7.5 MG, UNK

REACTIONS (1)
  - Pulmonary embolism [Recovering/Resolving]
